FAERS Safety Report 23064987 (Version 4)
Quarter: 2023Q4

REPORT INFORMATION
  Report Type: Report from Study
  Country: GB (occurrence: GB)
  Receive Date: 20231013
  Receipt Date: 20231129
  Transmission Date: 20240109
  Serious: Yes (Other)
  Sender: FDA-Public Use
  Company Number: GB-002147023-NVSC2023GB207336

PATIENT
  Age: 56 Year
  Sex: Female

DRUGS (3)
  1. KESIMPTA [Suspect]
     Active Substance: OFATUMUMAB
     Indication: Relapsing-remitting multiple sclerosis
     Dosage: 20 MG, QW (STARTING DOSES: ONCE A WEEK MAINTENANCE DOSES; ONCE A MONTH))=
     Route: 058
     Dates: start: 20230921
  2. KESIMPTA [Suspect]
     Active Substance: OFATUMUMAB
     Dosage: UNK
     Route: 058
     Dates: start: 20230928
  3. KESIMPTA [Suspect]
     Active Substance: OFATUMUMAB
     Dosage: 20 MG, QMO
     Route: 058

REACTIONS (22)
  - Neuropathy peripheral [Not Recovered/Not Resolved]
  - Muscle spasticity [Recovered/Resolved]
  - Vision blurred [Recovered/Resolved]
  - Feeling cold [Recovered/Resolved]
  - Paraesthesia [Unknown]
  - Limb discomfort [Unknown]
  - Muscular weakness [Unknown]
  - Feeling hot [Unknown]
  - Visual impairment [Not Recovered/Not Resolved]
  - Pain [Unknown]
  - Pruritus [Recovered/Resolved]
  - Chills [Recovered/Resolved]
  - Chills [Unknown]
  - Headache [Not Recovered/Not Resolved]
  - Fatigue [Recovered/Resolved]
  - Muscle spasticity [Not Recovered/Not Resolved]
  - Bladder disorder [Not Recovered/Not Resolved]
  - Oral herpes [Not Recovered/Not Resolved]
  - Fatigue [Not Recovered/Not Resolved]
  - Paraesthesia [Not Recovered/Not Resolved]
  - Blood pressure increased [Not Recovered/Not Resolved]
  - Heart rate increased [Not Recovered/Not Resolved]

NARRATIVE: CASE EVENT DATE: 20230921
